FAERS Safety Report 6565984-4 (Version None)
Quarter: 2010Q1

REPORT INFORMATION
  Report Type: 
  Country: None (occurrence: None)
  Receive Date: 20100129
  Receipt Date: 20100129
  Transmission Date: 20100710
  Serious: Yes (Hospitalization)
  Sender: FDA-Public Use
  Company Number: None

PATIENT
  Age: 73 Year
  Sex: Male

DRUGS (2)
  1. WARFARIN SODIUM [Suspect]
     Indication: ATRIAL FIBRILLATION
     Dosage: 40 MG QWEEK PO
     Route: 048
     Dates: start: 20091126
  2. ENOXAPARIN SODIUM [Suspect]
     Indication: ATRIAL FIBRILLATION
     Dosage: 70 MG BID SQ
     Route: 058
     Dates: start: 20091126, end: 20091215

REACTIONS (10)
  - ANAEMIA [None]
  - APPLICATION SITE BLEEDING [None]
  - DIARRHOEA [None]
  - DIZZINESS POSTURAL [None]
  - FAECES DISCOLOURED [None]
  - GASTRIC HAEMORRHAGE [None]
  - HYPOTENSION [None]
  - INTERNATIONAL NORMALISED RATIO ABNORMAL [None]
  - MALAISE [None]
  - NAUSEA [None]
